FAERS Safety Report 15769740 (Version 1)
Quarter: 2018Q4

REPORT INFORMATION
  Report Type: Spontaneous
  Country: GB (occurrence: GB)
  Receive Date: 20181228
  Receipt Date: 20181228
  Transmission Date: 20190205
  Serious: Yes (Other)
  Sender: FDA-Public Use
  Company Number: GB-SUN PHARMACEUTICAL INDUSTRIES LTD-2018RR-194820

PATIENT
  Age: 16 Year
  Sex: Male

DRUGS (2)
  1. FLUOXETINE [Suspect]
     Active Substance: FLUOXETINE HYDROCHLORIDE
     Indication: MAJOR DEPRESSION
     Dosage: 20 MG/DAY
     Route: 048
     Dates: start: 2007
  2. CITALOPRAM [Suspect]
     Active Substance: CITALOPRAM HYDROBROMIDE
     Indication: MAJOR DEPRESSION
     Dosage: UNK ()
     Route: 065
     Dates: start: 200708

REACTIONS (9)
  - Homicide [Recovered/Resolved]
  - Aggression [Recovered/Resolved]
  - Dissociative disorder [Recovered/Resolved]
  - Thinking abnormal [Unknown]
  - Emotional disorder [Unknown]
  - Mental disorder [Recovered/Resolved]
  - Dreamy state [Unknown]
  - Dyskinesia [Recovered/Resolved]
  - Inappropriate schedule of product administration [Unknown]

NARRATIVE: CASE EVENT DATE: 200712
